FAERS Safety Report 8190652-5 (Version None)
Quarter: 2012Q1

REPORT INFORMATION
  Report Type: 
  Country: None (occurrence: None)
  Receive Date: 20120307
  Receipt Date: 20120302
  Transmission Date: 20120608
  Serious: Yes (Other)
  Sender: FDA-Public Use
  Company Number: NO-ROCHE-1044323

PATIENT
  Sex: Female

DRUGS (2)
  1. HERCEPTIN [Suspect]
     Dates: end: 20120119
  2. HERCEPTIN [Suspect]
     Indication: BREAST CANCER
     Dates: start: 20110125

REACTIONS (2)
  - SYSTOLIC DYSFUNCTION [None]
  - CARDIOVASCULAR DISORDER [None]
